FAERS Safety Report 9750450 (Version 1)
Quarter: 2013Q4

REPORT INFORMATION
  Report Type: Spontaneous
  Country: US (occurrence: US)
  Receive Date: 20131212
  Receipt Date: 20131212
  Transmission Date: 20140711
  Serious: No
  Sender: FDA-Public Use
  Company Number: US-TEVA-398361USA

PATIENT
  Age: 32 Year
  Sex: Female
  Weight: 83.99 kg

DRUGS (3)
  1. PARAGARD 380A [Suspect]
     Indication: CONTRACEPTION
     Route: 015
     Dates: start: 20121022, end: 20130404
  2. NUVIGIL [Concomitant]
     Indication: NARCOLEPSY
  3. XYREM [Concomitant]
     Indication: NARCOLEPSY

REACTIONS (7)
  - Abdominal pain upper [Recovered/Resolved]
  - Drug hypersensitivity [Not Recovered/Not Resolved]
  - Bacterial infection [Recovered/Resolved]
  - Fungal infection [Recovered/Resolved]
  - Fatigue [Not Recovered/Not Resolved]
  - Blood urine present [Recovered/Resolved]
  - Alopecia [Not Recovered/Not Resolved]
